FAERS Safety Report 12422844 (Version 1)
Quarter: 2016Q2

REPORT INFORMATION
  Report Type: Report from Study
  Country: FR (occurrence: FR)
  Receive Date: 20160601
  Receipt Date: 20160601
  Transmission Date: 20160815
  Serious: Yes (Other)
  Sender: FDA-Public Use
  Company Number: FR-ROCHE-1767138

PATIENT
  Age: 70 Year
  Sex: Female

DRUGS (4)
  1. RANIBIZUMAB [Suspect]
     Active Substance: RANIBIZUMAB
     Indication: RETINAL VEIN OCCLUSION
     Dosage: 0.5 MG, LEFT EYE
     Route: 050
     Dates: start: 20141119
  2. RANIBIZUMAB [Suspect]
     Active Substance: RANIBIZUMAB
     Dosage: 0.5 MG, LEFT EYE
     Route: 050
     Dates: start: 20141217
  3. RANIBIZUMAB [Suspect]
     Active Substance: RANIBIZUMAB
     Indication: VISUAL IMPAIRMENT
     Dosage: 0.5 MG, LEFT EYE
     Route: 050
     Dates: start: 20141022, end: 20141022
  4. BETADIN [Concomitant]
     Active Substance: POVIDONE-IODINE
     Indication: PRODUCT USED FOR UNKNOWN INDICATION
     Dosage: UNK
     Route: 065

REACTIONS (1)
  - Keratitis [Recovered/Resolved]

NARRATIVE: CASE EVENT DATE: 20141022
